FAERS Safety Report 20145560 (Version 1)
Quarter: 2021Q4

REPORT INFORMATION
  Report Type: Spontaneous
  Country: IT (occurrence: IT)
  Receive Date: 20211203
  Receipt Date: 20211203
  Transmission Date: 20220303
  Serious: Yes (Hospitalization, Other)
  Sender: FDA-Public Use
  Company Number: None

PATIENT
  Age: 3 Year
  Weight: 15 kg

DRUGS (1)
  1. ONDANSETRON HYDROCHLORIDE [Suspect]
     Active Substance: ONDANSETRON HYDROCHLORIDE
     Indication: Gastroenteritis
     Dosage: UNKNOWN
     Route: 065
     Dates: start: 20211108

REACTIONS (2)
  - Haemolytic anaemia [Recovering/Resolving]
  - Glucose-6-phosphate dehydrogenase deficiency [Recovering/Resolving]

NARRATIVE: CASE EVENT DATE: 20211109
